FAERS Safety Report 4798830-X (Version None)
Quarter: 2005Q4

REPORT INFORMATION
  Report Type: 
  Country: None (occurrence: None)
  Receive Date: 20051014
  Receipt Date: 20051002
  Transmission Date: 20060501
  Serious: Yes (Life-Threatening, Hospitalization)
  Sender: FDA-Public Use
  Company Number: DE-KINGPHARMUSA00001-K200501339

PATIENT
  Age: 59 Year
  Sex: Male

DRUGS (3)
  1. ALTACE [Suspect]
     Indication: HYPERTENSION
     Dosage: 5 MG, UNK
  2. HYDROCHLOROTHIAZIDE [Suspect]
     Indication: HYPERTENSION
     Dosage: 12.5 MG, UNK
  3. SPIRONOLACTONE [Suspect]
     Dosage: 25 MG, UNK

REACTIONS (7)
  - BENIGN PROSTATIC HYPERPLASIA [None]
  - BLOOD CREATININE INCREASED [None]
  - BLOOD UREA INCREASED [None]
  - BRADYCARDIA [None]
  - ELECTROCARDIOGRAM T WAVE AMPLITUDE INCREASED [None]
  - HYPERKALAEMIA [None]
  - RENAL FAILURE ACUTE [None]
